FAERS Safety Report 19118825 (Version 4)
Quarter: 2021Q3

REPORT INFORMATION
  Report Type: Report from Study
  Country: None (occurrence: US)
  Receive Date: 20210409
  Receipt Date: 20210802
  Transmission Date: 20211014
  Serious: Yes (Other)
  Sender: FDA-Public Use
  Company Number: US-ABBVIE-21K-163-3848342-00

PATIENT
  Age: 86 Year
  Sex: Male

DRUGS (37)
  1. VENCLEXTA [Suspect]
     Active Substance: VENETOCLAX
     Route: 048
     Dates: start: 20210205, end: 20210401
  2. BENDEKA [Concomitant]
     Active Substance: BENDAMUSTINE HYDROCHLORIDE
     Indication: NON-HODGKIN^S LYMPHOMA
     Dosage: 120 D1, 2; DISCONTINUED
     Dates: start: 20191028, end: 20191104
  3. IMBRUVICA [Concomitant]
     Active Substance: IBRUTINIB
     Indication: CHRONIC LYMPHOCYTIC LEUKAEMIA
     Route: 048
     Dates: start: 20190709, end: 20190903
  4. IMBRUVICA [Concomitant]
     Active Substance: IBRUTINIB
     Dosage: 1 CAP BID
     Route: 048
  5. DILTIAZEM. [Concomitant]
     Active Substance: DILTIAZEM
     Dosage: 1 PO QDAY
     Route: 048
  6. LASIX [Concomitant]
     Active Substance: FUROSEMIDE
     Dosage: 1 PO Q DAY
     Route: 048
  7. LASIX [Concomitant]
     Active Substance: FUROSEMIDE
     Dosage: 2 PO TWICE A DAY
     Route: 048
  8. VENCLEXTA [Suspect]
     Active Substance: VENETOCLAX
     Indication: NON-HODGKIN^S LYMPHOMA
     Dosage: TAKE 1 TABLET BY MOUTH EVERY DAY
     Route: 048
     Dates: start: 20170619
  9. CYTOXAN [Concomitant]
     Active Substance: CYCLOPHOSPHAMIDE
     Indication: WALDENSTROM^S MACROGLOBULINAEMIA
     Dosage: 500 D1, 8 Q21 X 6; DISCONTINUED
     Dates: start: 20200203, end: 20200203
  10. DECADRON [Concomitant]
     Active Substance: DEXAMETHASONE
     Indication: WALDENSTROM^S MACROGLOBULINAEMIA
     Dosage: 20 D1,8 15 Q 28X 6; DISCONTINUED
     Route: 042
     Dates: start: 20191004, end: 20191011
  11. IMBRUVICA [Concomitant]
     Active Substance: IBRUTINIB
     Dosage: 1 CAP TID
     Route: 048
  12. SHINGRIX [Concomitant]
     Active Substance: RECOMBINANT VARICELLA ZOSTER VIRUS (VZV) GLYCOPROTEIN E
     Indication: PRODUCT USED FOR UNKNOWN INDICATION
     Dosage: 50 MCG/0.5 ML SUSPECSION KIT
  13. DIGOXIN. [Concomitant]
     Active Substance: DIGOXIN
     Indication: PRODUCT USED FOR UNKNOWN INDICATION
     Route: 048
  14. PNEUMOCOCCAL VACCINE POLYVALENT NOS [Concomitant]
     Active Substance: PNEUMOCOCCAL VACCINE POLYVALENT
     Indication: WALDENSTROM^S MACROGLOBULINAEMIA
     Dates: start: 20201028, end: 20201104
  15. BORTEZOMIB. [Concomitant]
     Active Substance: BORTEZOMIB
     Indication: WALDENSTROM^S MACROGLOBULINAEMIA
     Dosage: IVP: D 1, 8, 15, 22??4 WEEK ON 2 WEEK OFF X 12;
     Route: 058
     Dates: start: 20191004, end: 20191011
  16. GRANISETRON HCL [Concomitant]
     Active Substance: GRANISETRON HYDROCHLORIDE
     Indication: PRODUCT USED FOR UNKNOWN INDICATION
     Dosage: 1 PO BID OR PRN
     Route: 048
  17. IMBRUVICA [Concomitant]
     Active Substance: IBRUTINIB
     Route: 048
     Dates: start: 20170619, end: 20171106
  18. FLUZONE [Concomitant]
     Active Substance: INFLUENZA A VIRUS A/CALIFORNIA/7/2009 X-179A (H1N1) ANTIGEN (FORMALDEHYDE INACTIVATED)\INFLUENZA A VIRUS A/VICTORIA/210/2009 X-187 (H3N2) ANTIGEN (FORMALDEHYDE INACTIVATED)\INFLUENZA B VIRUS B/BRISBANE/60/2008 ANTIGEN (FORMALDEHYDE INACTIVATED)
     Indication: WALDENSTROM^S MACROGLOBULINAEMIA
     Dates: start: 20181008, end: 20181008
  19. VENCLEXTA [Suspect]
     Active Substance: VENETOCLAX
     Route: 048
     Dates: start: 20210402
  20. RITUXIMAB. [Suspect]
     Active Substance: RITUXIMAB
     Indication: WALDENSTROM^S MACROGLOBULINAEMIA
     Dosage: 375 D1; DISCONTINUED
     Route: 065
     Dates: start: 20191018, end: 20191217
  21. NEULASTA [Concomitant]
     Active Substance: PEGFILGRASTIM
     Indication: WALDENSTROM^S MACROGLOBULINAEMIA
     Dosage: 6MG/0.6 ML SYRINGE D3 EVERY 21 X 8, 24 HR AFTER COMPLETION OF CHEMO TREATMENT CYCLE
     Route: 058
     Dates: start: 20191018, end: 20191207
  22. IMBRUVICA [Concomitant]
     Active Substance: IBRUTINIB
     Dosage: 1 CAP PO Q DAY
     Route: 048
  23. ALLOPURINOL. [Concomitant]
     Active Substance: ALLOPURINOL
     Indication: PRODUCT USED FOR UNKNOWN INDICATION
     Dosage: 1 PO QDAY X 5 DAY
     Route: 048
  24. BENDEKA [Concomitant]
     Active Substance: BENDAMUSTINE HYDROCHLORIDE
     Indication: WALDENSTROM^S MACROGLOBULINAEMIA
  25. ELITEK [Concomitant]
     Active Substance: RASBURICASE
     Indication: WALDENSTROM^S MACROGLOBULINAEMIA
     Dosage: 0.2 D1?3; DISCONTINUED
     Dates: start: 20191018, end: 20191217
  26. IMBRUVICA [Concomitant]
     Active Substance: IBRUTINIB
     Dosage: 1 CAP PO Q DAY
     Route: 048
     Dates: start: 20181019, end: 20190308
  27. XARELTO [Concomitant]
     Active Substance: RIVAROXABAN
     Indication: PRODUCT USED FOR UNKNOWN INDICATION
     Route: 048
  28. ZOFRAN [Concomitant]
     Active Substance: ONDANSETRON HYDROCHLORIDE
     Indication: PRODUCT USED FOR UNKNOWN INDICATION
     Dosage: 1?2 PO EVERY 8 HR(TID) PRN
     Route: 048
  29. LASIX [Concomitant]
     Active Substance: FUROSEMIDE
     Indication: PRODUCT USED FOR UNKNOWN INDICATION
     Dosage: 3 PO Q DAY
     Route: 048
  30. IMBRUVICA [Concomitant]
     Active Substance: IBRUTINIB
     Indication: WALDENSTROM^S MACROGLOBULINAEMIA
     Route: 048
     Dates: start: 20180312, end: 20181008
  31. RISPERIDONE. [Concomitant]
     Active Substance: RISPERIDONE
     Indication: PRODUCT USED FOR UNKNOWN INDICATION
     Dosage: 1 TAB PO BID
     Route: 048
  32. VENCLEXTA [Suspect]
     Active Substance: VENETOCLAX
     Indication: WALDENSTROM^S MACROGLOBULINAEMIA
     Route: 048
     Dates: start: 20200818, end: 20210105
  33. PREVNAR 13 [Concomitant]
     Active Substance: PNEUMOCOCCAL 13-VALENT CONJUGATE VACCINE
     Indication: WALDENSTROM^S MACROGLOBULINAEMIA
     Dates: start: 20200812, end: 20200812
  34. PREDNISOLONE ACETATE. [Concomitant]
     Active Substance: PREDNISOLONE ACETATE
     Indication: PRODUCT USED FOR UNKNOWN INDICATION
     Dosage: INSTILL 1?2 DROP INTO AFFECTED EYE, 2?4 TIMES DAILY DURING THE INITIAL 24? 48 HR
  35. TOPROL XL [Concomitant]
     Active Substance: METOPROLOL SUCCINATE
     Indication: PRODUCT USED FOR UNKNOWN INDICATION
     Dosage: TAB EXTENDED RELEAS
     Route: 048
  36. DILTIAZEM. [Concomitant]
     Active Substance: DILTIAZEM
     Indication: PRODUCT USED FOR UNKNOWN INDICATION
     Dosage: 1 PO QDAY
     Route: 048
  37. HALOPERIDOL. [Concomitant]
     Active Substance: HALOPERIDOL
     Indication: PRODUCT USED FOR UNKNOWN INDICATION
     Dosage: 1 PO Q DAY PRN
     Route: 048

REACTIONS (4)
  - Off label use [Unknown]
  - Dementia [Unknown]
  - Dysphagia [Unknown]
  - Atrial fibrillation [Not Recovered/Not Resolved]

NARRATIVE: CASE EVENT DATE: 20170901
